FAERS Safety Report 7921323-5 (Version None)
Quarter: 2011Q4

REPORT INFORMATION
  Report Type: 
  Country: None (occurrence: None)
  Receive Date: 20111117
  Receipt Date: 20111111
  Transmission Date: 20120403
  Serious: Yes (Hospitalization)
  Sender: FDA-Public Use
  Company Number: US-AMGEN-USACT2011041650

PATIENT
  Age: 66 Year
  Sex: Female
  Weight: 67.574 kg

DRUGS (14)
  1. DURAGESIC-100 [Concomitant]
     Indication: PAIN
     Dosage: 25 MUG, UNK
     Dates: start: 20110706
  2. FOLIC ACID [Concomitant]
     Dosage: 1 MG, QD
     Dates: start: 20110629
  3. KAY CIEL DURA-TABS [Concomitant]
     Dosage: UNK UNK, BID
  4. PANITUMUMAB [Suspect]
     Indication: NON-SMALL CELL LUNG CANCER
     Dosage: 482 MG, UNK
     Route: 042
     Dates: start: 20110706, end: 20110803
  5. SIMVASTATIN [Concomitant]
     Indication: HYPERLIPIDAEMIA
     Dosage: 20 MG, QD
     Dates: start: 20110531
  6. ONDANSETRON [Concomitant]
     Indication: NAUSEA
     Dosage: 4 MG, PRN
     Dates: start: 20110715
  7. CARBOPLATIN [Concomitant]
     Dosage: 1252 MG, UNK
     Route: 042
     Dates: start: 20110706, end: 20110803
  8. IBUPROFEN [Concomitant]
     Indication: PAIN
     Dosage: 800 MG, BID
     Dates: start: 20100820
  9. MORPHINE [Concomitant]
     Indication: PAIN
     Dosage: 15 MG, PRN
     Dates: start: 20110715
  10. FENTANYL [Concomitant]
     Dosage: 25 MUG, UNK
  11. PEMETREXED [Concomitant]
     Dosage: 890 MG, UNK
     Route: 042
     Dates: start: 20110706, end: 20110803
  12. CYMBALTA [Concomitant]
     Indication: DEPRESSION
     Dosage: 60 MG, QD
     Dates: start: 20110531
  13. PROMETHAZINE [Concomitant]
     Indication: NAUSEA
     Dosage: 25 MG, PRN
     Dates: start: 20110706
  14. PERCOCET [Concomitant]
     Indication: PAIN
     Dosage: UNK UNK, PRN
     Dates: start: 20110629

REACTIONS (2)
  - CONSTIPATION [None]
  - ILEUS [None]
